FAERS Safety Report 6267948-7 (Version None)
Quarter: 2009Q3

REPORT INFORMATION
  Report Type: 
  Country: None (occurrence: None)
  Receive Date: 20090714
  Receipt Date: 20090702
  Transmission Date: 20100115
  Serious: Yes (Hospitalization)
  Sender: FDA-Public Use
  Company Number: US-GILEAD-2009-0022937

PATIENT
  Sex: Female
  Weight: 71.46 kg

DRUGS (2)
  1. TRUVADA [Suspect]
     Indication: HIV INFECTION
     Route: 048
     Dates: start: 20090611
  2. RALTEGRAVIR [Concomitant]
     Route: 048
     Dates: start: 20090611

REACTIONS (1)
  - ANAEMIA [None]
